FAERS Safety Report 5021616-8 (Version None)
Quarter: 2006Q2

REPORT INFORMATION
  Report Type: 
  Country: None (occurrence: None)
  Receive Date: 20060605
  Receipt Date: 20060523
  Transmission Date: 20061013
  Serious: Yes (Hospitalization)
  Sender: FDA-Public Use
  Company Number: US200604002638

PATIENT
  Sex: Male

DRUGS (5)
  1. ALIMTA [Suspect]
     Indication: LUNG NEOPLASM MALIGNANT
     Dosage: 500  MG/M2
     Dates: start: 20060412
  2. DECADRON SRC [Concomitant]
  3. ORAL  BLOOD GLUCOSE LOWERING DRUGS [Concomitant]
  4. CYANOCOBALAMIN [Concomitant]
  5. FOLIC ACID [Concomitant]

REACTIONS (5)
  - ASTHENIA [None]
  - FATIGUE [None]
  - HYPERGLYCAEMIA [None]
  - PYREXIA [None]
  - RASH [None]
